FAERS Safety Report 13877300 (Version 2)
Quarter: 2017Q3

REPORT INFORMATION
  Report Type: Spontaneous
  Country: DE (occurrence: DE)
  Receive Date: 20170817
  Receipt Date: 20170824
  Transmission Date: 20171127
  Serious: Yes (Other)
  Sender: FDA-Public Use
  Company Number: DE-JNJFOC-20170810242

PATIENT
  Age: 69 Year
  Sex: Female

DRUGS (1)
  1. RISPERDAL [Suspect]
     Active Substance: RISPERIDONE
     Indication: PRODUCT USED FOR UNKNOWN INDICATION
     Route: 048

REACTIONS (7)
  - Generalised tonic-clonic seizure [Unknown]
  - Psychotic symptom [Unknown]
  - Hyponatraemia [Unknown]
  - Cerebral atrophy [Unknown]
  - Fluid retention [Unknown]
  - Oedema [Unknown]
  - Drug ineffective [Unknown]
